FAERS Safety Report 14152337 (Version 1)
Quarter: 2017Q4

REPORT INFORMATION
  Report Type: Spontaneous
  Country: US (occurrence: None)
  Receive Date: 20171102
  Receipt Date: 20171102
  Transmission Date: 20180321
  Serious: Yes (Other)
  Sender: FDA-Public Use
  Company Number: None

PATIENT
  Age: 68 Year
  Sex: Male
  Weight: 95.26 kg

DRUGS (1)
  1. MORPHINE SULFATE 60MG ER TABS MAYNE PHARMA INC. [Suspect]
     Active Substance: MORPHINE SULFATE
     Dosage: 60 MG TAB TWICE EVERY 24 H ORAL
     Route: 048
     Dates: start: 20170921, end: 20171021

REACTIONS (9)
  - Headache [None]
  - Vomiting [None]
  - Tremor [None]
  - Anxiety [None]
  - Constipation [None]
  - Hyperhidrosis [None]
  - Product substitution issue [None]
  - Dizziness [None]
  - Muscle twitching [None]

NARRATIVE: CASE EVENT DATE: 20170921
